FAERS Safety Report 19923328 (Version 10)
Quarter: 2023Q2

REPORT INFORMATION
  Report Type: Report from Study
  Country: US (occurrence: US)
  Receive Date: 20211005
  Receipt Date: 20230614
  Transmission Date: 20230722
  Serious: No
  Sender: FDA-Public Use
  Company Number: US-NOVARTISTESTPH-NVSC2021US227466

PATIENT
  Sex: Female

DRUGS (2)
  1. COSENTYX [Suspect]
     Active Substance: SECUKINUMAB
     Indication: Product used for unknown indication
     Dosage: UNK
     Route: 065
  2. COSENTYX [Suspect]
     Active Substance: SECUKINUMAB
     Dosage: 300 MG, Q4W
     Route: 065

REACTIONS (11)
  - Psoriasis [Unknown]
  - Rash erythematous [Unknown]
  - Condition aggravated [Unknown]
  - Device issue [Unknown]
  - Product dose omission issue [Unknown]
  - Urticaria [Unknown]
  - Pain in extremity [Unknown]
  - Device leakage [Unknown]
  - Accidental exposure to product [Unknown]
  - Device defective [Unknown]
  - Incorrect dose administered [Unknown]
